FAERS Safety Report 4852524-0 (Version None)
Quarter: 2005Q4

REPORT INFORMATION
  Report Type: 
  Country: None (occurrence: None)
  Receive Date: 20051213
  Receipt Date: 20051019
  Transmission Date: 20060501
  Serious: Yes (Hospitalization)
  Sender: FDA-Public Use
  Company Number: PHBS2005JP15567

PATIENT
  Age: 82 Year
  Sex: Female

DRUGS (4)
  1. DIOVAN [Suspect]
     Indication: HYPERTENSION
     Dosage: 80 MG, QD
     Route: 048
     Dates: start: 20040601, end: 20051013
  2. LIPITOR [Suspect]
     Dosage: 10 MG, QD
     Route: 048
     Dates: start: 20040501, end: 20051013
  3. CEROCRAL [Suspect]
     Dosage: 60 MG, QD
     Route: 048
     Dates: start: 20040501, end: 20051013
  4. ARICEPT [Suspect]
     Dosage: 5 MG, QD
     Route: 048
     Dates: start: 20040501, end: 20051013

REACTIONS (7)
  - ALANINE AMINOTRANSFERASE INCREASED [None]
  - ARTHRALGIA [None]
  - ASPARTATE AMINOTRANSFERASE INCREASED [None]
  - BLOOD ALKALINE PHOSPHATASE INCREASED [None]
  - C-REACTIVE PROTEIN INCREASED [None]
  - HEPATIC FUNCTION ABNORMAL [None]
  - PYREXIA [None]
